FAERS Safety Report 10146538 (Version 1)
Quarter: 2014Q2

REPORT INFORMATION
  Report Type: Spontaneous
  Country: US (occurrence: None)
  Receive Date: 20140430
  Receipt Date: 20140430
  Transmission Date: 20141212
  Serious: Yes (Hospitalization)
  Sender: FDA-Public Use
  Company Number: None

PATIENT
  Age: 74 Year
  Sex: Female

DRUGS (10)
  1. HEPARIN [Suspect]
     Indication: HEART VALVE REPLACEMENT
     Dosage: DRIP, CONTINUOUS, IV
     Route: 042
     Dates: end: 20140118
  2. AMIODARONE [Concomitant]
  3. DIGOXIN [Concomitant]
  4. LANSOPRAZOLE [Concomitant]
  5. LEVOTHYROXINE [Concomitant]
  6. METOPROLOL [Concomitant]
  7. MIDODRINE [Concomitant]
  8. QUETIAPINE [Concomitant]
  9. ROSUVASTATIN [Concomitant]
  10. WARFARIN [Concomitant]

REACTIONS (4)
  - Septic shock [None]
  - Diverticulitis [None]
  - Peritonitis [None]
  - Haematoma [None]
